FAERS Safety Report 4625613-3 (Version None)
Quarter: 2005Q1

REPORT INFORMATION
  Report Type: 
  Country: None (occurrence: None)
  Receive Date: 20050330
  Receipt Date: 20050223
  Transmission Date: 20050727
  Serious: No
  Sender: FDA-Public Use
  Company Number: 10542

PATIENT

DRUGS (9)
  1. PACLITAXEL [Suspect]
     Indication: GASTRIC CANCER
     Dosage: 80 MG/M2 WEEKLY IV
     Route: 042
  2. FLUOROURACIL [Suspect]
     Indication: GASTRIC CANCER
     Dosage: 2000 MG/M2 WEEKLY IV
     Route: 042
  3. CISPLATIN [Suspect]
     Indication: GASTRIC CANCER
     Dosage: IV
     Route: 042
  4. FOLIC ACID [Suspect]
     Dosage: 500 MG/M2 WEEKLY IV
     Route: 042
  5. RANITIDINE [Concomitant]
  6. DEXAMETHASONE [Concomitant]
  7. DIPHENHYDRAMINE HCL [Concomitant]
  8. ANTI-EMETICS [Concomitant]
  9. PYRIDOXINE HCL [Concomitant]

REACTIONS (1)
  - NEUROTOXICITY [None]
